FAERS Safety Report 6541598-7 (Version None)
Quarter: 2010Q1

REPORT INFORMATION
  Report Type: 
  Country: None (occurrence: None)
  Receive Date: 20100119
  Receipt Date: 20100115
  Transmission Date: 20100710
  Serious: Yes (Death)
  Sender: FDA-Public Use
  Company Number: FR-ROCHE-679750

PATIENT
  Sex: Male

DRUGS (6)
  1. VALIUM [Suspect]
     Indication: ANXIETY
     Dosage: THERAPY DURATION REPORTED AS ^LONG TERM^
     Route: 048
  2. LEPONEX [Suspect]
     Route: 048
     Dates: start: 20090428
  3. FLUANXOL [Suspect]
     Dosage: THERAPY DURATION REPORTED AS ^LONG TERM^
     Route: 048
  4. LEVOTHYROXINE SODIUM [Suspect]
     Indication: THYROID DISORDER
     Dosage: THERAPY DURATION REPORTED AS ^LONG TERM TREATMENT^
     Route: 048
  5. DEPAKOTE [Suspect]
     Dosage: FORM: GASTRO-RESISTANT TABLET, THERAPY DURATION REPORTED AS ^LONG TERM TREATMENT^.
     Route: 048
  6. STILNOX [Suspect]
     Indication: ANXIETY
     Dosage: THERAPY DURATION REPORTED AS ^LONG TERM TREATMENT^
     Route: 048

REACTIONS (1)
  - SUDDEN DEATH [None]
